FAERS Safety Report 7322883-8 (Version None)
Quarter: 2011Q1

REPORT INFORMATION
  Report Type: 
  Country: None (occurrence: None)
  Receive Date: 20110217
  Receipt Date: 20110202
  Transmission Date: 20110831
  Serious: Yes (Hospitalization, Other)
  Sender: FDA-Public Use
  Company Number: 024719

PATIENT
  Sex: Male
  Weight: 91 kg

DRUGS (2)
  1. LACOSAMIDE [Suspect]
     Indication: EPILEPSY
     Dosage: 200, 250  MG BID, ORAL
     Route: 048
     Dates: start: 20101231
  2. LACOSAMIDE [Suspect]
     Indication: EPILEPSY
     Dosage: 200, 250  MG BID, ORAL
     Route: 048
     Dates: start: 20100326, end: 20101230

REACTIONS (7)
  - VIRAL INFECTION [None]
  - HEAD INJURY [None]
  - DRUG DOSE OMISSION [None]
  - BRAIN CONTUSION [None]
  - EPILEPSY [None]
  - GRAND MAL CONVULSION [None]
  - HAEMORRHAGE [None]
